FAERS Safety Report 7007938-X (Version None)
Quarter: 2010Q3

REPORT INFORMATION
  Report Type: 
  Country: None (occurrence: None)
  Receive Date: 20100920
  Receipt Date: 20100905
  Transmission Date: 20110219
  Serious: Yes (Hospitalization)
  Sender: FDA-Public Use
  Company Number: GB-DEXPHARMA-20101458

PATIENT
  Age: 73 Year
  Sex: Male

DRUGS (1)
  1. OMEPRAZOLE DOSAGE FORM; CAPSULE ACTIVE SUBSTANCES: OMEPRAZOLE [Suspect]
     Dosage: 20 MG MILLIGRAM(S) SEP. DOSAGES/INTERVAL: 1 IN 1 DAY, RESPIRATORY (INHALATION)
     Route: 055

REACTIONS (3)
  - COMA ACIDOTIC [None]
  - OFF LABEL USE [None]
  - WRONG DRUG ADMINISTERED [None]
